FAERS Safety Report 5148055-3 (Version None)
Quarter: 2006Q4

REPORT INFORMATION
  Report Type: 
  Country: None (occurrence: None)
  Receive Date: 20061110
  Receipt Date: 20061108
  Transmission Date: 20070319
  Serious: Yes (Other)
  Sender: FDA-Public Use
  Company Number: AU-BRISTOL-MYERS SQUIBB COMPANY-13570551

PATIENT
  Age: 72 Year
  Sex: Female

DRUGS (14)
  1. AVAPRO [Suspect]
     Route: 048
  2. CITALOPRAM HYDROBROMIDE [Suspect]
  3. GAVISCON [Concomitant]
  4. CLOTRIMAZOLE [Concomitant]
  5. CEPHALEXIN [Concomitant]
  6. PANAMAX [Concomitant]
  7. LOSEC [Concomitant]
  8. ZOCOR [Concomitant]
  9. ALPRIM [Concomitant]
  10. MAXOLON [Concomitant]
  11. THIAMINE HCL [Concomitant]
  12. ISCOVER [Concomitant]
  13. TEMAZEPAM [Concomitant]
  14. CALTRATE [Concomitant]

REACTIONS (2)
  - CIRCULATORY COLLAPSE [None]
  - CONVULSION [None]
